FAERS Safety Report 9064344 (Version 2)
Quarter: 2013Q1

REPORT INFORMATION
  Report Type: Spontaneous
  Country: US (occurrence: US)
  Receive Date: 20130128
  Receipt Date: 20130328
  Transmission Date: 20140127
  Serious: Yes (Other)
  Sender: FDA-Public Use
  Company Number: US-JNJFOC-20130109420

PATIENT
  Age: 74 Year
  Sex: Female
  Weight: 52.16 kg

DRUGS (15)
  1. SIMPONI [Suspect]
     Indication: RHEUMATOID ARTHRITIS
     Route: 058
  2. SIMPONI [Suspect]
     Indication: RHEUMATOID ARTHRITIS
     Route: 058
  3. HEART MEDICATION (NOS) [Suspect]
     Indication: PRODUCT USED FOR UNKNOWN INDICATION
     Route: 065
     Dates: start: 20130102, end: 2013
  4. LEVOXYL [Concomitant]
     Indication: THYROID DISORDER
     Dosage: 75MCG/ DAILY
     Route: 048
  5. SINGULAIR [Concomitant]
     Indication: MULTIPLE ALLERGIES
     Route: 048
  6. NEXIUM [Concomitant]
     Route: 048
  7. ASPIRIN [Concomitant]
     Route: 048
  8. MULTIVITAMINS [Concomitant]
     Route: 065
  9. FISH OIL [Concomitant]
     Route: 048
  10. CRESTOR [Concomitant]
     Indication: BLOOD CHOLESTEROL ABNORMAL
     Route: 048
  11. COSOPT [Concomitant]
     Indication: INTRAOCULAR PRESSURE INCREASED
     Route: 065
  12. XALATAN [Concomitant]
     Indication: INTRAOCULAR PRESSURE INCREASED
     Route: 065
  13. CALCIUM [Concomitant]
     Route: 048
  14. VITAMIN D [Concomitant]
     Route: 048
  15. METOPROLOL TARTRATE [Concomitant]
     Indication: BLOOD PRESSURE
     Route: 048
     Dates: start: 2013

REACTIONS (5)
  - Heart rate decreased [Recovered/Resolved]
  - Balance disorder [Recovering/Resolving]
  - Device malfunction [Unknown]
  - Dizziness [Recovering/Resolving]
  - Drug dose omission [Not Recovered/Not Resolved]
